FAERS Safety Report 9288579 (Version 1)
Quarter: 2013Q2

REPORT INFORMATION
  Report Type: Spontaneous
  Country: US (occurrence: None)
  Receive Date: 20130513
  Receipt Date: 20130513
  Transmission Date: 20140414
  Serious: No
  Sender: FDA-Public Use
  Company Number: None

PATIENT
  Age: 60 Year
  Sex: Female

DRUGS (1)
  1. XOLAIR [Suspect]
     Dosage: RECONSTITUTE THE VIAL WITH 1.4 ML STERILE WATER FOR INJECTION
     Route: 058
     Dates: start: 20120329

REACTIONS (5)
  - Dizziness [None]
  - Balance disorder [None]
  - Arthralgia [None]
  - Headache [None]
  - Respiratory disorder [None]
